FAERS Safety Report 9827005 (Version 1)
Quarter: 2013Q4

REPORT INFORMATION
  Report Type: Spontaneous
  Country: US (occurrence: None)
  Receive Date: 20131112
  Receipt Date: 20131112
  Transmission Date: 20140711
  Serious: No
  Sender: FDA-Public Use
  Company Number: US-013017

PATIENT
  Age: 71 Year
  Sex: Female
  Weight: 116 kg

DRUGS (12)
  1. PICO-SALAX [Suspect]
     Indication: PRODUCT USED FOR UNKNOWN INDICATION
     Dates: start: 20130915
  2. CELLCEPT [Concomitant]
  3. MESTINON [Concomitant]
  4. DIOVAN HCT [Concomitant]
  5. NEXIUM [Concomitant]
  6. AMBIEN [Concomitant]
  7. OXYCONTIN [Concomitant]
  8. OXYCODONE [Concomitant]
  9. VALACYCLOVIR HCL [Concomitant]
  10. FOLBIC [Concomitant]
  11. ADDITIVA VITMAIN C [Concomitant]
  12. CALCIUM CARBONATE AND VITAMIN D [Concomitant]

REACTIONS (1)
  - Drug ineffective [None]
